FAERS Safety Report 6540959-X (Version None)
Quarter: 2010Q1

REPORT INFORMATION
  Report Type: 
  Country: None (occurrence: None)
  Receive Date: 20100118
  Receipt Date: 20091209
  Transmission Date: 20100710
  Serious: No
  Sender: FDA-Public Use
  Company Number: US-BAYER-200942651NA

PATIENT
  Age: 29 Year
  Sex: Female
  Weight: 72 kg

DRUGS (3)
  1. YAZ [Suspect]
     Indication: CONTRACEPTION
     Route: 048
     Dates: start: 20090901
  2. ACCUTANE [Concomitant]
     Indication: ACNE
  3. AMPHETAMINE SULFATE [Concomitant]
     Indication: ATTENTION DEFICIT/HYPERACTIVITY DISORDER

REACTIONS (2)
  - AMENORRHOEA [None]
  - NO ADVERSE EVENT [None]
